FAERS Safety Report 22526386 (Version 2)
Quarter: 2023Q2

REPORT INFORMATION
  Report Type: Spontaneous
  Country: US (occurrence: US)
  Receive Date: 20230606
  Receipt Date: 20230606
  Transmission Date: 20230722
  Serious: No
  Sender: FDA-Public Use
  Company Number: US-Dermavant-000655

PATIENT
  Age: 67 Year
  Sex: Female

DRUGS (7)
  1. TAPINAROF [Suspect]
     Active Substance: TAPINAROF
     Indication: Psoriasis
     Dosage: AREA OF APPLICATION: BOTTOM AND SIDES OF FEET
     Route: 061
  2. ESTRADIOL [Concomitant]
     Active Substance: ESTRADIOL
  3. ESTRADIOL [Concomitant]
     Active Substance: ESTRADIOL
  4. TRAZODONE [Concomitant]
     Active Substance: TRAZODONE HYDROCHLORIDE
  5. PHENTERMINE [Concomitant]
     Active Substance: PHENTERMINE
  6. TOPIRAMATE [Concomitant]
     Active Substance: TOPIRAMATE
  7. BISOPROLOL [Concomitant]
     Active Substance: BISOPROLOL

REACTIONS (1)
  - Influenza like illness [Not Recovered/Not Resolved]
